FAERS Safety Report 15642867 (Version 2)
Quarter: 2018Q4

REPORT INFORMATION
  Report Type: Spontaneous
  Country: BG (occurrence: BG)
  Receive Date: 20181121
  Receipt Date: 20181128
  Transmission Date: 20190205
  Serious: Yes (Death)
  Sender: FDA-Public Use
  Company Number: BG-ROCHE-2217616

PATIENT
  Age: 63 Year
  Sex: Female
  Weight: 67 kg

DRUGS (1)
  1. ACTILYSE [Suspect]
     Active Substance: ALTEPLASE
     Indication: THROMBOLYSIS
     Dosage: CALCULATED DOSE OF ALTEPLASE 60 MG ADMINISTERED BOLUS DOSE 6 MG, 10 % BOLUS?THERAPY DETAILS OF ALTEP
     Route: 065
     Dates: start: 20171115

REACTIONS (5)
  - Quadriplegia [Fatal]
  - Coma [Fatal]
  - Generalised tonic-clonic seizure [Fatal]
  - Brain oedema [Fatal]
  - Haemorrhage [Fatal]

NARRATIVE: CASE EVENT DATE: 20171115
